FAERS Safety Report 4900360-9 (Version None)
Quarter: 2006Q1

REPORT INFORMATION
  Report Type: 
  Country: None (occurrence: None)
  Receive Date: 20060203
  Receipt Date: 20060123
  Transmission Date: 20060701
  Serious: Yes (Other)
  Sender: FDA-Public Use
  Company Number: 2006SE00447

PATIENT
  Age: 68 Year
  Sex: Female

DRUGS (6)
  1. NEXIUM [Suspect]
     Indication: DYSPEPSIA
     Route: 048
     Dates: start: 20051210, end: 20051214
  2. NEXIUM [Suspect]
     Indication: HELICOBACTER PYLORI IDENTIFICATION TEST POSITIVE
     Route: 048
     Dates: start: 20051210, end: 20051214
  3. IMACILLIN [Suspect]
     Indication: DYSPEPSIA
     Route: 048
     Dates: start: 20051210, end: 20051214
  4. IMACILLIN [Suspect]
     Indication: HELICOBACTER PYLORI IDENTIFICATION TEST POSITIVE
     Route: 048
     Dates: start: 20051210, end: 20051214
  5. KLACID [Suspect]
     Indication: DYSPEPSIA
     Route: 048
     Dates: start: 20051210, end: 20051214
  6. KLACID [Suspect]
     Indication: HELICOBACTER PYLORI IDENTIFICATION TEST POSITIVE
     Route: 048
     Dates: start: 20051210, end: 20051214

REACTIONS (3)
  - ANGIONEUROTIC OEDEMA [None]
  - OEDEMA MOUTH [None]
  - PHARYNGEAL OEDEMA [None]
